FAERS Safety Report 8349767-0 (Version None)
Quarter: 2012Q2

REPORT INFORMATION
  Report Type: 
  Country: None (occurrence: None)
  Receive Date: 20120510
  Receipt Date: 20120504
  Transmission Date: 20120825
  Serious: Yes (Hospitalization)
  Sender: FDA-Public Use
  Company Number: US-BAYER-2012-003763

PATIENT
  Age: 27 Year
  Sex: Female
  Weight: 90.249 kg

DRUGS (4)
  1. TAMIFLU [Concomitant]
     Dosage: 75 MG, BID
     Route: 048
     Dates: start: 20110411
  2. YAZ [Suspect]
     Dosage: UNK
     Dates: start: 20100801, end: 20110501
  3. CITALOPRAM HYDROBROMIDE [Concomitant]
     Dosage: UNK
     Dates: start: 20110215
  4. YAZ [Suspect]
     Indication: CONTRACEPTION
     Dosage: UNK
     Route: 048
     Dates: start: 20080201, end: 20091001

REACTIONS (5)
  - DEEP VEIN THROMBOSIS [None]
  - EMOTIONAL DISTRESS [None]
  - PAIN [None]
  - GENERAL PHYSICAL HEALTH DETERIORATION [None]
  - ANXIETY [None]
